FAERS Safety Report 16001480 (Version 1)
Quarter: 2019Q1

REPORT INFORMATION
  Report Type: Spontaneous
  Country: US (occurrence: US)
  Receive Date: 20190225
  Receipt Date: 20190225
  Transmission Date: 20190418
  Serious: No
  Sender: FDA-Public Use
  Company Number: US-SUNOVION-2019SUN000735

PATIENT
  Sex: Male
  Weight: 68.03 kg

DRUGS (4)
  1. NEXIUM SANDOZ [Concomitant]
     Dosage: UNK
     Route: 065
  2. LUNESTA [Suspect]
     Active Substance: ESZOPICLONE
     Indication: INSOMNIA
     Dosage: UNK
     Route: 048
  3. ZYRTEC R [Concomitant]
     Active Substance: CETIRIZINE HYDROCHLORIDE
     Indication: HYPERSENSITIVITY
     Dosage: UNK
     Route: 065
  4. CHANTIX [Suspect]
     Active Substance: VARENICLINE TARTRATE
     Indication: SMOKING CESSATION THERAPY
     Dosage: 1 MG, BID
     Route: 065
     Dates: start: 20180528

REACTIONS (2)
  - Drug ineffective [Unknown]
  - Insomnia [Unknown]
